FAERS Safety Report 12799665 (Version 2)
Quarter: 2017Q1

REPORT INFORMATION
  Report Type: Report from Study
  Country: CO (occurrence: CO)
  Receive Date: 20160930
  Receipt Date: 20170213
  Transmission Date: 20170428
  Serious: Yes (Other)
  Sender: FDA-Public Use
  Company Number: CO-AMGEN-COLSL2016131662

PATIENT
  Age: 60 Year
  Sex: Female

DRUGS (1)
  1. VECTIBIX [Suspect]
     Active Substance: PANITUMUMAB
     Indication: COLORECTAL CANCER METASTATIC
     Dosage: 500 MG, Q2WK
     Route: 042
     Dates: start: 20160706

REACTIONS (6)
  - Haemorrhage [Not Recovered/Not Resolved]
  - Epistaxis [Not Recovered/Not Resolved]
  - Nasal discomfort [Not Recovered/Not Resolved]
  - Skin fissures [Not Recovered/Not Resolved]
  - Eye irritation [Not Recovered/Not Resolved]
  - Rash generalised [Not Recovered/Not Resolved]

NARRATIVE: CASE EVENT DATE: 20160902
